FAERS Safety Report 11547582 (Version 3)
Quarter: 2015Q4

REPORT INFORMATION
  Report Type: Spontaneous
  Country: CZ (occurrence: CZ)
  Receive Date: 20150924
  Receipt Date: 20151120
  Transmission Date: 20160304
  Serious: Yes (Hospitalization, Other)
  Sender: FDA-Public Use
  Company Number: CZ-PFIZER INC-2015316793

PATIENT
  Age: 25 Year
  Sex: Female

DRUGS (2)
  1. DALACIN [Suspect]
     Active Substance: CLINDAMYCIN\CLINDAMYCIN PHOSPHATE
     Indication: ANIMAL BITE
     Dosage: 600 MG, 3X/DAY
     Dates: start: 20150911, end: 20150913
  2. AESCIN /00337201/ [Concomitant]

REACTIONS (3)
  - Drug eruption [Recovered/Resolved]
  - Dermatitis allergic [Recovered/Resolved]
  - Dyspnoea [Recovered/Resolved]

NARRATIVE: CASE EVENT DATE: 20150913
